FAERS Safety Report 17014812 (Version 2)
Quarter: 2020Q1

REPORT INFORMATION
  Report Type: Spontaneous
  Country: US (occurrence: US)
  Receive Date: 20191111
  Receipt Date: 20200204
  Transmission Date: 20200409
  Serious: Yes (Death, Other)
  Sender: FDA-Public Use
  Company Number: US-GLAXOSMITHKLINE-US2019201099

PATIENT
  Age: 91 Year
  Sex: Female
  Weight: 45.81 kg

DRUGS (2)
  1. GABAPENTIN. [Suspect]
     Active Substance: GABAPENTIN
     Indication: PRODUCT USED FOR UNKNOWN INDICATION
     Dosage: UNK
     Route: 065
  2. TRELEGY ELLIPTA [Suspect]
     Active Substance: FLUTICASONE FUROATE\UMECLIDINIUM BROMIDE\VILANTEROL TRIFENATATE
     Indication: CHRONIC OBSTRUCTIVE PULMONARY DISEASE
     Dosage: 100/62.5/25
     Route: 065
     Dates: start: 201810

REACTIONS (5)
  - Back pain [Unknown]
  - Chronic obstructive pulmonary disease [Fatal]
  - General physical health deterioration [Unknown]
  - Fatigue [Unknown]
  - Humerus fracture [Unknown]

NARRATIVE: CASE EVENT DATE: 201909
